FAERS Safety Report 10800529 (Version 1)
Quarter: 2015Q1

REPORT INFORMATION
  Report Type: Spontaneous
  Country: US (occurrence: US)
  Receive Date: 20150216
  Receipt Date: 20150216
  Transmission Date: 20150721
  Serious: No
  Sender: FDA-Public Use
  Company Number: US-ALLERGAN-1406995US

PATIENT
  Age: 39 Year
  Sex: Female

DRUGS (1)
  1. RESTASIS [Suspect]
     Active Substance: CYCLOSPORINE
     Indication: DRY EYE
     Dosage: 2 GTT, BID
     Route: 047
     Dates: start: 201401, end: 20140404

REACTIONS (7)
  - Epistaxis [Recovered/Resolved]
  - Anxiety [Unknown]
  - Migraine [Recovering/Resolving]
  - Sinusitis [Unknown]
  - Alopecia [Unknown]
  - Insomnia [Recovering/Resolving]
  - Pruritus [Recovering/Resolving]

NARRATIVE: CASE EVENT DATE: 20140404
